FAERS Safety Report 7609258-9 (Version None)
Quarter: 2011Q3

REPORT INFORMATION
  Report Type: 
  Country: None (occurrence: None)
  Receive Date: 20110714
  Receipt Date: 20110712
  Transmission Date: 20111222
  Serious: No
  Sender: FDA-Public Use
  Company Number: US-TEVA-290149USA

PATIENT
  Sex: Male

DRUGS (3)
  1. AZILECT [Suspect]
     Indication: PARKINSON'S DISEASE
  2. ROPINIROLE HYDROCHLORIDE [Concomitant]
  3. AMANTADINE HCL [Concomitant]

REACTIONS (1)
  - GAIT DISTURBANCE [None]
